FAERS Safety Report 5965809-1 (Version None)
Quarter: 2008Q4

REPORT INFORMATION
  Report Type: 
  Country: None (occurrence: None)
  Receive Date: 20081121
  Receipt Date: 20081121
  Transmission Date: 20090506
  Serious: No
  Sender: FDA-Public Use
  Company Number: None

PATIENT
  Sex: Male
  Weight: 76.2043 kg

DRUGS (1)
  1. COLD-EEZE LOZENGES THE QUIGLEY CORPORATION [Suspect]
     Indication: NASOPHARYNGITIS
     Dosage: 1 EVERY 2-4 HOURS PO
     Route: 048
     Dates: start: 20081116, end: 20081118

REACTIONS (1)
  - AGEUSIA [None]
